FAERS Safety Report 22398473 (Version 1)
Quarter: 2023Q2

REPORT INFORMATION
  Report Type: Spontaneous
  Country: US (occurrence: US)
  Receive Date: 20230602
  Receipt Date: 20230602
  Transmission Date: 20230722
  Serious: No
  Sender: FDA-Public Use
  Company Number: US-ARBOR PHARMACEUTICALS, LLC-US-2023ARB000136

PATIENT
  Sex: Male

DRUGS (1)
  1. HORIZANT [Suspect]
     Active Substance: GABAPENTIN ENACARBIL
     Indication: Guillain-Barre syndrome
     Dosage: 1200 MG, BID

REACTIONS (1)
  - Off label use [Unknown]
